FAERS Safety Report 5394120-5 (Version None)
Quarter: 2007Q3

REPORT INFORMATION
  Report Type: 
  Country: None (occurrence: None)
  Receive Date: 20070723
  Receipt Date: 20070711
  Transmission Date: 20080115
  Serious: Yes (Hospitalization)
  Sender: FDA-Public Use
  Company Number: GB-AMGEN-UK219816

PATIENT
  Sex: Male

DRUGS (15)
  1. PANITUMUMAB [Suspect]
     Indication: COLORECTAL CANCER
     Route: 042
     Dates: start: 20070213, end: 20070313
  2. CIPROFLOXACIN [Concomitant]
     Route: 048
     Dates: start: 20070412, end: 20070415
  3. ATORVASTATIN CALCIUM [Concomitant]
     Route: 048
     Dates: start: 20050101
  4. LOSARTAN POTASSIUM [Concomitant]
     Route: 048
     Dates: start: 20030101
  5. RANITIDINE [Concomitant]
     Route: 048
     Dates: start: 20061201
  6. PYRIDOXINE HCL [Concomitant]
     Route: 048
  7. VERAPAMIL [Concomitant]
     Route: 048
     Dates: start: 20050101
  8. METOCLOPRAMIDE [Concomitant]
     Route: 048
     Dates: start: 20070401
  9. INSULIN GLARGINE [Concomitant]
     Route: 058
     Dates: start: 20070401
  10. NOVORAPID [Concomitant]
     Route: 058
     Dates: start: 20070412
  11. SODIUM CHLORIDE [Concomitant]
     Route: 042
     Dates: start: 20070412, end: 20070417
  12. DEXTROSE [Concomitant]
     Route: 042
     Dates: start: 20070413, end: 20070413
  13. BLOOD, WHOLE [Concomitant]
     Route: 042
     Dates: start: 20070417, end: 20070418
  14. CALCIUM GLUCONATE [Concomitant]
     Route: 042
     Dates: start: 20070417, end: 20070417
  15. MAGNESIUM SULFATE [Concomitant]
     Route: 048
     Dates: start: 20070419, end: 20070423

REACTIONS (1)
  - BLOOD CREATININE INCREASED [None]
